FAERS Safety Report 8842643 (Version 1)
Quarter: 2012Q4

REPORT INFORMATION
  Report Type: 
  Country: US (occurrence: US)
  Receive Date: 20121016
  Receipt Date: 20121016
  Transmission Date: 20130627
  Serious: No
  Sender: FDA-Public Use
  Company Number: US-ASTRAZENECA-2012SE75975

PATIENT
  Age: 57 Year
  Sex: Male
  Weight: 79.4 kg

DRUGS (4)
  1. NEXIUM [Suspect]
     Indication: GASTROOESOPHAGEAL REFLUX DISEASE
     Route: 048
  2. NEXIUM [Suspect]
     Indication: GASTROOESOPHAGEAL REFLUX DISEASE
     Dosage: DAILY DOSE EVERY THREE DAYS
     Route: 048
  3. NEXIUM [Suspect]
     Indication: GASTROOESOPHAGEAL REFLUX DISEASE
     Dosage: DAILY DOSE EVERY TWO DAYS
     Route: 048
  4. GENERIC THYROID MEDICATION [Concomitant]
     Indication: THYROID HORMONE REPLACEMENT THERAPY

REACTIONS (2)
  - Gastrooesophageal reflux disease [Unknown]
  - Intentional drug misuse [Unknown]
